FAERS Safety Report 5452220-5 (Version None)
Quarter: 2007Q3

REPORT INFORMATION
  Report Type: 
  Country: None (occurrence: None)
  Receive Date: 20070912
  Receipt Date: 20070912
  Transmission Date: 20080115
  Serious: Yes (Hospitalization)
  Sender: FDA-Public Use
  Company Number: None

PATIENT
  Sex: Female
  Weight: 71 kg

DRUGS (6)
  1. DILANTIN [Suspect]
  2. TEMOZOLOMIDE [Suspect]
     Dosage: 5535 MG
  3. DILANTIN [Concomitant]
  4. NEXIUM [Concomitant]
  5. VALIUM [Concomitant]
  6. ZOFRAN [Concomitant]

REACTIONS (6)
  - CHILLS [None]
  - DIARRHOEA [None]
  - DRUG TOXICITY [None]
  - NAUSEA [None]
  - PYREXIA [None]
  - VOMITING [None]
